FAERS Safety Report 8914501 (Version 1)
Quarter: 2012Q4

REPORT INFORMATION
  Report Type: 
  Country: KR (occurrence: KR)
  Receive Date: 20121119
  Receipt Date: 20121119
  Transmission Date: 20130627
  Serious: Yes (Other)
  Sender: FDA-Public Use
  Company Number: KR-PFIZER INC-2012281843

PATIENT
  Sex: Male

DRUGS (3)
  1. VIAGRA [Suspect]
     Indication: ERECTILE DYSFUNCTION
     Dosage: half of 100 mg (50 mg), weekly
     Route: 048
     Dates: start: 201207
  2. VIAGRA [Suspect]
     Dosage: 100 mg, UNK
     Route: 048
     Dates: start: 201210
  3. WARFARIN [Concomitant]
     Dosage: UNK
     Route: 048

REACTIONS (3)
  - Vascular rupture [Recovered/Resolved]
  - Epistaxis [Not Recovered/Not Resolved]
  - Contusion [Not Recovered/Not Resolved]
